FAERS Safety Report 26131740 (Version 1)
Quarter: 2025Q4

REPORT INFORMATION
  Report Type: Spontaneous
  Country: US (occurrence: None)
  Receive Date: 20251208
  Receipt Date: 20251208
  Transmission Date: 20260117
  Serious: Yes (Hospitalization)
  Sender: FDA-CTU
  Company Number: None

PATIENT
  Sex: Female

DRUGS (3)
  1. NUCALA [Suspect]
     Active Substance: MEPOLIZUMAB
     Indication: Asthma
     Dosage: INJECT 100 MG UNDER THE SKIN (SUBCUTANEOUS INJECTION) EVERY FOUR WEEKS
     Route: 058
     Dates: start: 20250307
  2. CEFEPIME INJ 2GM [Concomitant]
  3. PREDNISONE [Concomitant]
     Active Substance: PREDNISONE

REACTIONS (5)
  - Asthma [None]
  - Infection [None]
  - Impaired quality of life [None]
  - Headache [None]
  - Back pain [None]
